FAERS Safety Report 20536652 (Version 1)
Quarter: 2022Q1

REPORT INFORMATION
  Report Type: Spontaneous
  Country: JP (occurrence: JP)
  Receive Date: 20220302
  Receipt Date: 20220302
  Transmission Date: 20220423
  Serious: Yes (Hospitalization)
  Sender: FDA-Public Use
  Company Number: JP-JNJFOC-20211014982

PATIENT
  Age: 6 Year

DRUGS (1)
  1. RISPERDAL [Suspect]
     Active Substance: RISPERIDONE
     Indication: Product used for unknown indication
     Route: 048

REACTIONS (5)
  - Depressed level of consciousness [Unknown]
  - Dyskinesia [Unknown]
  - Accidental overdose [Unknown]
  - Medication error [Unknown]
  - Tremor [Unknown]

NARRATIVE: CASE EVENT DATE: 20210929
